FAERS Safety Report 8482833-8 (Version None)
Quarter: 2012Q3

REPORT INFORMATION
  Report Type: 
  Country: None (occurrence: None)
  Receive Date: 20120702
  Receipt Date: 20120627
  Transmission Date: 20120928
  Serious: Yes (Hospitalization)
  Sender: FDA-Public Use
  Company Number: US-GILEAD-2012-0056049

PATIENT
  Sex: Female

DRUGS (2)
  1. LETAIRIS [Suspect]
     Indication: SCLERODERMA
  2. LETAIRIS [Suspect]
     Indication: PULMONARY HYPERTENSION
     Dosage: 10 MG, UNK
     Route: 048
     Dates: start: 20120301, end: 20120612

REACTIONS (8)
  - UNEVALUABLE EVENT [None]
  - NASAL DISORDER [None]
  - RESPIRATORY DISTRESS [None]
  - FLUID RETENTION [None]
  - EYE DISORDER [None]
  - EYE DISCHARGE [None]
  - BACTERIAL INFECTION [None]
  - PYREXIA [None]
